FAERS Safety Report 12111209 (Version 1)
Quarter: 2016Q1

REPORT INFORMATION
  Report Type: Spontaneous
  Country: US (occurrence: US)
  Receive Date: 20160224
  Receipt Date: 20160224
  Transmission Date: 20160526
  Serious: Yes (Hospitalization, Other)
  Sender: FDA-Public Use
  Company Number: US-ROXANE LABORATORIES, INC.-2016-RO-00330RO

PATIENT
  Age: 58 Year
  Sex: Male

DRUGS (2)
  1. PREDNISONE TABLETS USP, 5MG [Suspect]
     Active Substance: PREDNISONE
     Indication: TUBULOINTERSTITIAL NEPHRITIS
     Route: 065
  2. PREDNISONE TABLETS USP, 5MG [Suspect]
     Active Substance: PREDNISONE
     Indication: SARCOIDOSIS
     Dosage: 10 MG
     Route: 065

REACTIONS (3)
  - Mania [Recovered/Resolved]
  - Blood glucose increased [Recovered/Resolved]
  - Drug resistance [Recovered/Resolved]
